FAERS Safety Report 5462441-3 (Version None)
Quarter: 2007Q3

REPORT INFORMATION
  Report Type: 
  Country: None (occurrence: None)
  Receive Date: 20070814
  Receipt Date: 20070530
  Transmission Date: 20080115
  Serious: Yes (Other)
  Sender: FDA-Public Use
  Company Number: WAES 0609USA07422

PATIENT
  Age: 68 Year
  Sex: Female

DRUGS (3)
  1. FOSAMAX PLUS D [Suspect]
     Indication: OSTEOPENIA
     Dosage: 70MG/2800 IU/PO
     Route: 048
     Dates: start: 20051201, end: 20060421
  2. FOSAMAX [Suspect]
     Indication: OSTEOPENIA
     Dosage: 70 MG/WKY/PO
     Route: 048
     Dates: start: 19960101, end: 20051201
  3. SYNTHROID [Concomitant]

REACTIONS (1)
  - OSTEONECROSIS [None]
